FAERS Safety Report 21056259 (Version 1)
Quarter: 2022Q3

REPORT INFORMATION
  Report Type: Spontaneous
  Country: JP (occurrence: JP)
  Receive Date: 20220708
  Receipt Date: 20220708
  Transmission Date: 20221027
  Serious: Yes (Other)
  Sender: FDA-Public Use
  Company Number: JP-TAKEDA-2022TUS028164

PATIENT
  Age: 35 Year
  Sex: Female

DRUGS (12)
  1. INTUNIV [Suspect]
     Active Substance: GUANFACINE HYDROCHLORIDE
     Indication: Attention deficit hyperactivity disorder
     Dosage: 2 MILLIGRAM, QD
     Route: 048
     Dates: start: 20220316, end: 20220412
  2. VALPROATE SODIUM [Concomitant]
     Active Substance: VALPROATE SODIUM
     Indication: Mental impairment
     Dosage: 400 MILLIGRAM, QD
     Route: 048
     Dates: start: 20220616
  3. VALPROATE SODIUM [Concomitant]
     Active Substance: VALPROATE SODIUM
     Indication: Bipolar disorder
  4. SERTRALINE HYDROCHLORIDE [Concomitant]
     Active Substance: SERTRALINE HYDROCHLORIDE
     Indication: Autonomic nervous system imbalance
     Dosage: 100 MILLIGRAM, QD
     Route: 048
     Dates: start: 20201216
  5. SERTRALINE HYDROCHLORIDE [Concomitant]
     Active Substance: SERTRALINE HYDROCHLORIDE
     Indication: Panic disorder
  6. SERTRALINE HYDROCHLORIDE [Concomitant]
     Active Substance: SERTRALINE HYDROCHLORIDE
     Indication: Bipolar disorder
  7. SHAKUYAKUKANZOTO [Concomitant]
     Active Substance: HERBALS
     Dosage: 22.5 GRAM, QD
     Route: 048
     Dates: start: 20220118
  8. HERBALS [Concomitant]
     Active Substance: HERBALS
     Indication: Headache
     Dosage: 22.5 GRAM, QD
     Route: 048
     Dates: start: 20220513
  9. HERBALS [Concomitant]
     Active Substance: HERBALS
     Indication: Mental impairment
     Dosage: UNK
     Dates: start: 20210721, end: 20220413
  10. HERBALS [Concomitant]
     Active Substance: HERBALS
     Indication: Autonomic nervous system imbalance
  11. HERBALS [Concomitant]
     Active Substance: HERBALS
     Indication: Panic disorder
  12. HERBALS [Concomitant]
     Active Substance: HERBALS
     Indication: Bipolar disorder

REACTIONS (8)
  - Haematochezia [Not Recovered/Not Resolved]
  - Malaise [Recovered/Resolved]
  - Constipation [Recovered/Resolved]
  - Nausea [Recovered/Resolved]
  - Thirst [Recovered/Resolved]
  - Dry eye [Recovered/Resolved]
  - Dizziness [Recovered/Resolved]
  - Headache [Recovered/Resolved]

NARRATIVE: CASE EVENT DATE: 20220301
